FAERS Safety Report 23494880 (Version 1)
Quarter: 2024Q1

REPORT INFORMATION
  Report Type: Spontaneous
  Country: US (occurrence: None)
  Receive Date: 20240207
  Receipt Date: 20240207
  Transmission Date: 20240410
  Serious: Yes (Other)
  Sender: FDA-Public Use
  Company Number: 2024A031824

PATIENT

DRUGS (5)
  1. PRILOSEC OTC [Suspect]
     Active Substance: OMEPRAZOLE MAGNESIUM
     Dosage: UNK
     Route: 048
  2. ATENOLOL [Suspect]
     Active Substance: ATENOLOL
     Dosage: UNK
  3. ALVESCO [Suspect]
     Active Substance: CICLESONIDE
     Dosage: UNK, 2 /DAY
     Route: 048
  4. ZANTAC [Suspect]
     Active Substance: RANITIDINE HYDROCHLORIDE
     Dosage: UNK
  5. ASPIRIN [Suspect]
     Active Substance: ASPIRIN
     Dosage: UNK

REACTIONS (4)
  - Acute kidney injury [Unknown]
  - End stage renal disease [Unknown]
  - Tubulointerstitial nephritis [Unknown]
  - Chronic kidney disease [Unknown]
